FAERS Safety Report 25956964 (Version 4)
Quarter: 2025Q4

REPORT INFORMATION
  Report Type: Spontaneous
  Country: KR (occurrence: KR)
  Receive Date: 20251024
  Receipt Date: 20251221
  Transmission Date: 20260117
  Serious: Yes (Hospitalization)
  Sender: AMGEN
  Company Number: KR-AMGEN-KORSP2025207342

PATIENT
  Age: 62 Year
  Sex: Female
  Weight: 45.7 kg

DRUGS (13)
  1. XGEVA [Suspect]
     Active Substance: DENOSUMAB
     Indication: Prophylaxis
     Dosage: 120 MILLIGRAM, QMO
     Route: 058
     Dates: start: 20240527, end: 20250904
  2. FULVESTRANT [Suspect]
     Active Substance: FULVESTRANT
     Indication: Breast cancer
     Dosage: 500 MILLIGRAM, Q2WK
     Route: 030
     Dates: start: 20240718, end: 20240808
  3. FULVESTRANT [Suspect]
     Active Substance: FULVESTRANT
     Dosage: 500 MILLIGRAM, Q4WK
     Route: 030
     Dates: start: 20240823
  4. OXYCODONE [Concomitant]
     Active Substance: OXYCODONE
     Indication: Pain management
     Dosage: UNK
     Route: 048
     Dates: start: 20240418
  5. IMPACTAMIN [Concomitant]
     Indication: Periodontal disease
     Dosage: 755 MILLIGRAM, QD
     Route: 048
     Dates: start: 20250507
  6. ACETAMINOPHEN [Concomitant]
     Active Substance: ACETAMINOPHEN
     Indication: Periodontal disease
     Dosage: 650 MILLIGRAM, TID
     Route: 048
     Dates: start: 20250611, end: 20251001
  7. ACETAMINOPHEN [Concomitant]
     Active Substance: ACETAMINOPHEN
     Dosage: UNK UNK, BID (1/100 G/ML 2X/DAY)
     Route: 040
     Dates: start: 20250611
  8. ACETAMINOPHEN [Concomitant]
     Active Substance: ACETAMINOPHEN
     Dosage: 650 MILLIGRAM
     Route: 048
     Dates: start: 20251004, end: 20251008
  9. ZALTOPROFEN [Concomitant]
     Active Substance: ZALTOPROFEN
     Indication: Periodontal disease
     Dosage: 80 MILLIGRAM, TID
     Route: 048
     Dates: start: 20250709
  10. CEFACLOR [Concomitant]
     Active Substance: CEFACLOR
     Indication: Periodontal disease
     Dosage: 250 MILLIGRAM, TID
     Route: 048
     Dates: start: 20250909, end: 20251001
  11. ULTRACET [Concomitant]
     Active Substance: ACETAMINOPHEN\TRAMADOL HYDROCHLORIDE
     Indication: Periodontal disease
     Dosage: UNK UNK, TID (75MG/ACETAMINOPHEN 650MG)
     Route: 048
     Dates: start: 20250728, end: 20251001
  12. METRONIDAZOLE [Concomitant]
     Active Substance: METRONIDAZOLE
     Indication: Periodontal disease
     Dosage: 250 MILLIGRAM, BID
     Route: 048
     Dates: start: 20250929, end: 20251002
  13. METRONIDAZOLE [Concomitant]
     Active Substance: METRONIDAZOLE
     Dosage: UNK UNK, TID ( 500/100 MG/ML 3X/DAY)
     Route: 040
     Dates: start: 20251002, end: 20251009

REACTIONS (1)
  - Periodontal disease [Recovered/Resolved]
